FAERS Safety Report 11071474 (Version 1)
Quarter: 2015Q2

REPORT INFORMATION
  Report Type: Spontaneous
  Country: US (occurrence: None)
  Receive Date: 20150427
  Receipt Date: 20150427
  Transmission Date: 20150821
  Serious: Yes (Life-Threatening, Hospitalization)
  Sender: FDA-Public Use
  Company Number: None

PATIENT
  Age: 29 Year
  Sex: Female
  Weight: 54.43 kg

DRUGS (3)
  1. PROBOTIC [Concomitant]
     Active Substance: PROBIOTICS NOS
  2. MUCINEX DM [Suspect]
     Active Substance: DEXTROMETHORPHAN HYDROBROMIDE\GUAIFENESIN
     Indication: COUGH
     Route: 048
     Dates: start: 20150419, end: 20150419
  3. ALIVE MULTI VITIMAN [Concomitant]

REACTIONS (13)
  - Abasia [None]
  - Dyskinesia [None]
  - Palpitations [None]
  - Aphasia [None]
  - Blood pressure increased [None]
  - Breast swelling [None]
  - Feeling cold [None]
  - Panic attack [None]
  - Drug hypersensitivity [None]
  - Tremor [None]
  - Burning sensation [None]
  - Agitation [None]
  - Mobility decreased [None]

NARRATIVE: CASE EVENT DATE: 20150413
